FAERS Safety Report 14907763 (Version 1)
Quarter: 2018Q2

REPORT INFORMATION
  Report Type: Report from Study
  Country: US (occurrence: US)
  Receive Date: 20180517
  Receipt Date: 20180517
  Transmission Date: 20180711
  Serious: Yes (Other)
  Sender: FDA-Public Use
  Company Number: US-ASTELLAS-2018US022680

PATIENT
  Sex: Male

DRUGS (3)
  1. SOLIFENACIN [Suspect]
     Active Substance: SOLIFENACIN
     Indication: PRODUCT USED FOR UNKNOWN INDICATION
     Route: 048
  2. SOLIFENACIN [Suspect]
     Active Substance: SOLIFENACIN
     Route: 048
  3. SOLIFENACIN [Suspect]
     Active Substance: SOLIFENACIN
     Indication: PRODUCT USED FOR UNKNOWN INDICATION
     Route: 048

REACTIONS (4)
  - Myocardial infarction [Unknown]
  - Vision blurred [Unknown]
  - Arthritis [Unknown]
  - Visual impairment [Unknown]
